FAERS Safety Report 4851253-7 (Version None)
Quarter: 2005Q4

REPORT INFORMATION
  Report Type: 
  Country: None (occurrence: None)
  Receive Date: 20051212
  Receipt Date: 20051128
  Transmission Date: 20060501
  Serious: Yes (Hospitalization)
  Sender: FDA-Public Use
  Company Number: ESWYE185029NOV05

PATIENT
  Sex: Male
  Weight: 60 kg

DRUGS (1)
  1. ENBREL [Suspect]
     Indication: PSORIASIS
     Route: 058
     Dates: start: 20050908, end: 20050920

REACTIONS (1)
  - DERMATITIS EXFOLIATIVE [None]
